FAERS Safety Report 8361142-1 (Version None)
Quarter: 2012Q2

REPORT INFORMATION
  Report Type: 
  Country: None (occurrence: None)
  Receive Date: 20120515
  Receipt Date: 20120430
  Transmission Date: 20120825
  Serious: Yes (Other)
  Sender: FDA-Public Use
  Company Number: IR-WATSON-2012-07790

PATIENT
  Age: 24 Year
  Sex: Female

DRUGS (1)
  1. CLONAZEPAM [Suspect]
     Indication: BIPOLAR DISORDER
     Dosage: 0.5 MG - 180 MG DAILY
     Route: 065

REACTIONS (7)
  - DRUG TOLERANCE [None]
  - INSOMNIA [None]
  - DRUG DEPENDENCE [None]
  - SELF-MEDICATION [None]
  - WITHDRAWAL SYNDROME [None]
  - CONVERSION DISORDER [None]
  - TENSION [None]
